FAERS Safety Report 9052328 (Version 1)
Quarter: 2013Q1

REPORT INFORMATION
  Report Type: Spontaneous
  Country: US (occurrence: US)
  Receive Date: 20130206
  Receipt Date: 20130206
  Transmission Date: 20140127
  Serious: Yes (Hospitalization)
  Sender: FDA-Public Use
  Company Number: US-JNJFOC-20130115006

PATIENT
  Sex: Female

DRUGS (2)
  1. REMICADE [Suspect]
     Indication: CROHN^S DISEASE
     Route: 042
  2. TUMOR NECROSIS FACTOR NOS [Suspect]
     Indication: CROHN^S DISEASE
     Route: 065

REACTIONS (3)
  - Drug effect decreased [Recovered/Resolved]
  - Adverse event [Recovered/Resolved]
  - Product quality issue [None]
